FAERS Safety Report 8332648-6 (Version None)
Quarter: 2012Q2

REPORT INFORMATION
  Report Type: 
  Country: None (occurrence: None)
  Receive Date: 20120503
  Receipt Date: 20120418
  Transmission Date: 20120825
  Serious: Yes (Other)
  Sender: FDA-Public Use
  Company Number: CN-JNJFOC-20120501701

PATIENT
  Sex: Female
  Weight: 40 kg

DRUGS (2)
  1. RISPERIDONE [Suspect]
     Indication: MENTAL DISORDER
     Route: 048
     Dates: start: 20110215, end: 20110228
  2. RISPERDAL [Suspect]
     Indication: MENTAL DISORDER
     Route: 048

REACTIONS (3)
  - CHILLS [None]
  - EXTRAPYRAMIDAL DISORDER [None]
  - ARRHYTHMIA [None]
